FAERS Safety Report 10070200 (Version 5)
Quarter: 2014Q3

REPORT INFORMATION
  Report Type: Spontaneous
  Country: IL (occurrence: IL)
  Receive Date: 20140410
  Receipt Date: 20140716
  Transmission Date: 20150326
  Serious: Yes (Hospitalization)
  Sender: FDA-Public Use
  Company Number: IL-CELGENEUS-082-21880-14035174

PATIENT
  Age: 76 Year
  Sex: Male
  Weight: 67.7 kg

DRUGS (5)
  1. DEXAMETHASONE. [Suspect]
     Active Substance: DEXAMETHASONE
     Indication: PLASMA CELL MYELOMA
     Route: 048
     Dates: start: 20131127, end: 20140327
  2. SERETIDE [Concomitant]
     Active Substance: FLUTICASONE FUROATE\SALMETEROL XINAFOATE
     Indication: RESPIRATORY DISORDER
     Dosage: 50/250
     Route: 055
     Dates: start: 20140218
  3. REVLIMID [Suspect]
     Active Substance: LENALIDOMIDE
     Indication: PLASMA CELL MYELOMA
     Route: 048
     Dates: start: 20131127, end: 20140328
  4. TIOTROPIUM BROMIDE [Concomitant]
     Active Substance: TIOTROPIUM BROMIDE
     Indication: RESPIRATORY DISORDER
     Dosage: 500 MICROGRAM
     Route: 055
     Dates: start: 2010
  5. BLINDED MLN9708 [Suspect]
     Active Substance: IXAZOMIB
     Indication: PLASMA CELL MYELOMA
     Route: 048
     Dates: start: 20131127, end: 20140328

REACTIONS (1)
  - Trifascicular block [Recovered/Resolved]

NARRATIVE: CASE EVENT DATE: 20140327
